FAERS Safety Report 11004682 (Version 2)
Quarter: 2015Q2

REPORT INFORMATION
  Report Type: Report from Study
  Country: KR (occurrence: KR)
  Receive Date: 20150409
  Receipt Date: 20150421
  Transmission Date: 20150821
  Serious: Yes (Hospitalization)
  Sender: FDA-Public Use
  Company Number: KR-ACTELION-A-CH2015-115433

PATIENT
  Age: 44 Year
  Sex: Female
  Weight: 74 kg

DRUGS (1)
  1. MACITENTAN [Suspect]
     Active Substance: MACITENTAN
     Indication: PULMONARY ARTERIAL HYPERTENSION
     Dosage: 10 MG, QD
     Route: 048
     Dates: start: 20140823

REACTIONS (8)
  - Menorrhagia [Recovered/Resolved]
  - Ovarian cyst [Not Recovered/Not Resolved]
  - Packed red blood cell transfusion [Recovered/Resolved]
  - Dizziness [Recovered/Resolved]
  - Uterine leiomyoma [Unknown]
  - Haematocrit decreased [Recovered/Resolved]
  - Anaemia [Recovered/Resolved]
  - Haemoglobin decreased [Recovered/Resolved]

NARRATIVE: CASE EVENT DATE: 20150325
